FAERS Safety Report 10599009 (Version 2)
Quarter: 2014Q4

REPORT INFORMATION
  Report Type: Report from Study
  Country: ES (occurrence: ES)
  Receive Date: 20141121
  Receipt Date: 20141121
  Transmission Date: 20150529
  Serious: Yes (Hospitalization)
  Sender: FDA-Public Use
  Company Number: ES-ABBVIE-12P-144-0956619-05

PATIENT
  Age: 35 Year
  Sex: Male

DRUGS (3)
  1. INFLIXIMAB [Concomitant]
     Active Substance: INFLIXIMAB
     Indication: ANORECTAL DISORDER
     Dosage: AT BEGINNING 15 DAYS THEN Q8W
     Dates: start: 20100511
  2. INFLIXIMAB [Concomitant]
     Active Substance: INFLIXIMAB
     Indication: FISTULA DISCHARGE
     Dates: start: 20110906
  3. HUMIRA [Suspect]
     Active Substance: ADALIMUMAB
     Indication: CROHN^S DISEASE
     Dosage: BASELINE160MG/WEEK 2 80 MG
     Route: 058
     Dates: start: 20071215, end: 20100401

REACTIONS (2)
  - Anal abscess [Not Recovered/Not Resolved]
  - Fistula discharge [Not Recovered/Not Resolved]

NARRATIVE: CASE EVENT DATE: 20111121
